FAERS Safety Report 5633933-9 (Version None)
Quarter: 2008Q1

REPORT INFORMATION
  Report Type: 
  Country: None (occurrence: None)
  Receive Date: 20080221
  Receipt Date: 20080219
  Transmission Date: 20080703
  Serious: Yes (Hospitalization)
  Sender: FDA-Public Use
  Company Number: US-GILEAD-2007-0014589

PATIENT
  Sex: Female
  Weight: 54.7 kg

DRUGS (12)
  1. LETAIRIS [Suspect]
     Indication: PULMONARY HYPERTENSION
     Route: 048
     Dates: start: 20070701, end: 20071101
  2. LETAIRIS [Suspect]
     Route: 048
     Dates: start: 20071101, end: 20071202
  3. REVATIO [Suspect]
     Indication: PULMONARY HYPERTENSION
     Dates: start: 20030601
  4. REVATIO [Suspect]
     Route: 048
     Dates: start: 20030901
  5. REVATIO [Suspect]
     Route: 048
     Dates: start: 20071201
  6. LASIX [Concomitant]
     Indication: PULMONARY HYPERTENSION
     Route: 048
     Dates: start: 20040310
  7. LOVENOX [Concomitant]
     Indication: PULMONARY HYPERTENSION
     Route: 058
     Dates: start: 20030716
  8. DIGITEK [Concomitant]
     Indication: PULMONARY HYPERTENSION
     Route: 048
     Dates: start: 20030326
  9. TYLENOL (CAPLET) [Concomitant]
     Indication: HEADACHE
     Route: 048
     Dates: start: 20050101
  10. AMBIEN [Concomitant]
     Indication: INSOMNIA
     Route: 048
     Dates: start: 20040301
  11. AMBIEN [Concomitant]
     Route: 048
  12. LEVOTHYROXINE SODIUM [Concomitant]
     Route: 048

REACTIONS (3)
  - GASTROENTERITIS [None]
  - PULMONARY HYPERTENSION [None]
  - RIGHT VENTRICULAR FAILURE [None]
